FAERS Safety Report 10687977 (Version 1)
Quarter: 2014Q4

REPORT INFORMATION
  Report Type: Spontaneous
  Country: US (occurrence: None)
  Receive Date: 20141231
  Receipt Date: 20141231
  Transmission Date: 20150529
  Serious: Yes (Hospitalization)
  Sender: FDA-Public Use
  Company Number: None

PATIENT
  Age: 87 Year
  Sex: Male
  Weight: 71.67 kg

DRUGS (1)
  1. SULFAMETHOXAZOLE/TRIMETHOPRIM [Suspect]
     Active Substance: SULFAMETHOXAZOLE\TRIMETHOPRIM
     Indication: INFECTION
     Dosage: 1 TAB  BID  PO
     Route: 048
     Dates: start: 20141119, end: 20141205

REACTIONS (2)
  - Tubulointerstitial nephritis [None]
  - Acute kidney injury [None]

NARRATIVE: CASE EVENT DATE: 20141205
